FAERS Safety Report 9659428 (Version 1)
Quarter: 2013Q4

REPORT INFORMATION
  Report Type: Spontaneous
  Country: JP (occurrence: JP)
  Receive Date: 20131031
  Receipt Date: 20131031
  Transmission Date: 20140711
  Serious: Yes (Hospitalization, Other)
  Sender: FDA-Public Use
  Company Number: JP-BAYER-2013-129906

PATIENT
  Age: 49 Year
  Sex: Male

DRUGS (6)
  1. ADALAT [Suspect]
     Dosage: 60 MG, UNK
     Route: 048
     Dates: end: 20131008
  2. TELMISARTAN + HYDROCHLOROTHIAZIDE [Suspect]
     Dosage: 1 DF, QD
     Dates: end: 20131008
  3. DABIGATRAN [Suspect]
     Indication: ATRIAL FIBRILLATION
     Dosage: 300 MG, QD
     Route: 048
     Dates: end: 20131008
  4. CARDENALIN [Suspect]
     Dosage: 8 MG, UNK
     Route: 048
     Dates: end: 20131008
  5. TENORMIN [Suspect]
     Dosage: 100 MG, UNK
     Route: 048
     Dates: end: 20131008
  6. SUNRYTHM [Concomitant]
     Dosage: 150 MG, QD
     Route: 048
     Dates: end: 20131008

REACTIONS (4)
  - Shock [Recovering/Resolving]
  - Altered state of consciousness [Recovering/Resolving]
  - Activated partial thromboplastin time prolonged [None]
  - Renal disorder [None]
